FAERS Safety Report 9970788 (Version 1)
Quarter: 2014Q1

REPORT INFORMATION
  Report Type: Report from Study
  Country: US (occurrence: US)
  Receive Date: 20140306
  Receipt Date: 20140306
  Transmission Date: 20141002
  Serious: No
  Sender: FDA-Public Use
  Company Number: US-ABBVIE-13P-163-1150621-00

PATIENT
  Age: 24 Year
  Sex: Female
  Weight: 65.83 kg

DRUGS (4)
  1. HUMIRA [Suspect]
     Indication: CROHN^S DISEASE
     Route: 058
     Dates: start: 20130829, end: 20130829
  2. HUMIRA [Suspect]
     Route: 058
     Dates: start: 20130912, end: 20130912
  3. HUMIRA [Suspect]
  4. GENERESS FE [Concomitant]
     Indication: MENSTRUAL DISORDER

REACTIONS (2)
  - Injection site bruising [Not Recovered/Not Resolved]
  - Dyspepsia [Not Recovered/Not Resolved]
